FAERS Safety Report 5886661-9 (Version None)
Quarter: 2008Q3

REPORT INFORMATION
  Report Type: 
  Country: None (occurrence: None)
  Receive Date: 20080917
  Receipt Date: 20080910
  Transmission Date: 20090109
  Serious: Yes (Hospitalization, Other)
  Sender: FDA-Public Use
  Company Number: PHHY2008CA15520

PATIENT
  Sex: Female

DRUGS (6)
  1. CLOZARIL [Suspect]
     Indication: SCHIZOPHRENIA, PARANOID TYPE
     Dosage: 200 MG, QHS
     Route: 048
     Dates: start: 20080713, end: 20080724
  2. VALSARTAN [Concomitant]
     Dosage: 160, DAILY
  3. LORAZEPAM [Concomitant]
     Dosage: 0.5 UNK, BID
  4. BENYLIN DM [Concomitant]
     Dosage: 10 ML, QID
  5. COLACE [Concomitant]
  6. SENNOSIDE [Concomitant]

REACTIONS (8)
  - ARRHYTHMIA [None]
  - ATRIAL FIBRILLATION [None]
  - DRUG TOXICITY [None]
  - NODAL RHYTHM [None]
  - PLEURAL EFFUSION [None]
  - PNEUMONITIS [None]
  - PYREXIA [None]
  - SCHIZOPHRENIA, PARANOID TYPE [None]
